FAERS Safety Report 5122791-7 (Version None)
Quarter: 2006Q4

REPORT INFORMATION
  Report Type: 
  Country: None (occurrence: None)
  Receive Date: 20061004
  Receipt Date: 20060925
  Transmission Date: 20070319
  Serious: Yes (Other)
  Sender: FDA-Public Use
  Company Number: 228222

PATIENT
  Age: 43 Year
  Sex: Female
  Weight: 97 kg

DRUGS (2)
  1. XOLAIR [Suspect]
     Indication: ASTHMA
     Dosage: 300 MG, SUBCUTANEOUS
     Route: 058
     Dates: start: 20060524
  2. MEDICATION (UNK INGREDIENT) (GENERIC COMPONENT(S) NOT KNOWN) [Concomitant]

REACTIONS (20)
  - BACK PAIN [None]
  - CHILLS [None]
  - DYSPNOEA [None]
  - FATIGUE [None]
  - HEADACHE [None]
  - HOT FLUSH [None]
  - HYPERHIDROSIS [None]
  - INFLUENZA LIKE ILLNESS [None]
  - MUSCULAR WEAKNESS [None]
  - MYALGIA [None]
  - NASAL CONGESTION [None]
  - NASOPHARYNGITIS [None]
  - OEDEMA PERIPHERAL [None]
  - PAIN [None]
  - PAIN IN EXTREMITY [None]
  - POST PROCEDURAL NAUSEA [None]
  - PRODUCTIVE COUGH [None]
  - PYREXIA [None]
  - SENSATION OF HEAVINESS [None]
  - WHEEZING [None]
